FAERS Safety Report 21055751 (Version 1)
Quarter: 2022Q3

REPORT INFORMATION
  Report Type: Spontaneous
  Country: IN (occurrence: IN)
  Receive Date: 20220708
  Receipt Date: 20220708
  Transmission Date: 20221027
  Serious: Yes (Other)
  Sender: FDA-Public Use
  Company Number: IN-CIPLA LTD.-2022IN04202

PATIENT
  Age: 66 Year
  Sex: Female

DRUGS (10)
  1. ANASTROZOLE [Suspect]
     Active Substance: ANASTROZOLE
     Indication: Breast cancer
     Dosage: UNK
     Route: 065
     Dates: start: 2021, end: 20211122
  2. ANASTROZOLE [Suspect]
     Active Substance: ANASTROZOLE
     Indication: Cancer hormonal therapy
     Dosage: UNK
     Route: 065
  3. TRASTUZUMAB [Suspect]
     Active Substance: TRASTUZUMAB
     Indication: Breast cancer
     Dosage: 440 MILLIGRAM, FIRST DOSE
     Route: 065
     Dates: start: 2021
  4. TRASTUZUMAB [Suspect]
     Active Substance: TRASTUZUMAB
     Indication: Adjuvant therapy
     Dosage: 220 MILLIGRAM, WEEKLY (FOR 12 WEEKS)
     Route: 065
     Dates: start: 2021, end: 20211122
  5. TRASTUZUMAB [Suspect]
     Active Substance: TRASTUZUMAB
     Dosage: 660 MILLIGRAM, ONCE EVERY 21 DAYS FOR 13 DAYS
     Route: 065
  6. PACLITAXEL [Suspect]
     Active Substance: PACLITAXEL
     Indication: Breast cancer
     Dosage: 200 MILLIGRAM
     Route: 065
     Dates: start: 2021, end: 20211122
  7. PACLITAXEL [Suspect]
     Active Substance: PACLITAXEL
     Indication: Adjuvant therapy
  8. NATZOLD [Concomitant]
     Indication: Product used for unknown indication
     Dosage: UNK, 6 MONTHLY
     Route: 065
  9. ELTROMBOPAG OLAMINE [Concomitant]
     Active Substance: ELTROMBOPAG OLAMINE
     Indication: Immune thrombocytopenia
     Dosage: 50 MILLIGRAM, ONCE IN 3 DAYS
     Route: 065
  10. ELTROMBOPAG OLAMINE [Concomitant]
     Active Substance: ELTROMBOPAG OLAMINE
     Dosage: 50 MILLIGRAM, QD
     Route: 065

REACTIONS (5)
  - Cellulitis [Recovering/Resolving]
  - Pyrexia [Recovering/Resolving]
  - Viral infection [Recovering/Resolving]
  - Arthralgia [Recovering/Resolving]
  - Myalgia [Recovering/Resolving]

NARRATIVE: CASE EVENT DATE: 20210101
